FAERS Safety Report 18650118 (Version 1)
Quarter: 2020Q4

REPORT INFORMATION
  Report Type: Spontaneous
  Country: US (occurrence: US)
  Receive Date: 20201222
  Receipt Date: 20201222
  Transmission Date: 20210114
  Serious: Yes (Other)
  Sender: FDA-Public Use
  Company Number: US-EYEVANCE PHARMACEUTICALS-2020EYE00333

PATIENT
  Sex: Female

DRUGS (1)
  1. FRESHKOTE [Suspect]
     Active Substance: POLYVINYL ALCOHOL\POVIDONE
     Dosage: 1 DROP, 2X/DAY
     Route: 047

REACTIONS (4)
  - Surgery [Recovered/Resolved]
  - Product use complaint [Not Recovered/Not Resolved]
  - Blindness [Not Recovered/Not Resolved]
  - Product label issue [Not Recovered/Not Resolved]
